FAERS Safety Report 5123668-3 (Version None)
Quarter: 2006Q3

REPORT INFORMATION
  Report Type: 
  Country: None (occurrence: None)
  Receive Date: 20060811
  Receipt Date: 20060607
  Transmission Date: 20061208
  Serious: No
  Sender: FDA-Public Use
  Company Number: S06-USA-02307-01

PATIENT
  Age: 96 Year
  Sex: Male

DRUGS (8)
  1. NAMENDA [Suspect]
     Dosage: 10 MG BID PO
     Route: 048
     Dates: start: 20060101, end: 20060603
  2. NAMENDA [Suspect]
     Dosage: 15 MG QD PO
     Route: 048
     Dates: start: 20060101, end: 20060101
  3. NAMENDA [Suspect]
     Dosage: 5 MG BID PO
     Route: 048
     Dates: start: 20060101, end: 20060101
  4. NAMENDA [Suspect]
     Dosage: 5 MG QD PO
     Route: 048
     Dates: start: 20060101, end: 20060101
  5. CELEXA [Suspect]
     Indication: DEPRESSION
     Dosage: 10 MG PO
     Route: 048
  6. DIGOXIN [Concomitant]
  7. LEVOTHYROXINE [Concomitant]
  8. ALLOPURINOL [Concomitant]

REACTIONS (3)
  - CRYING [None]
  - DEPRESSION [None]
  - SOCIAL AVOIDANT BEHAVIOUR [None]
